FAERS Safety Report 23779084 (Version 1)
Quarter: 2024Q2

REPORT INFORMATION
  Report Type: Spontaneous
  Country: US (occurrence: US)
  Receive Date: 20240424
  Receipt Date: 20240424
  Transmission Date: 20240716
  Serious: No
  Sender: FDA-Public Use
  Company Number: US-UPSHER-SMITH LABORATORIES, LLC-2023USL00922

PATIENT
  Age: 62 Year
  Sex: Female

DRUGS (3)
  1. QUDEXY XR [Suspect]
     Active Substance: TOPIRAMATE
     Indication: Seizure prophylaxis
     Dosage: UNK
     Route: 048
     Dates: end: 2022
  2. QUDEXY XR [Suspect]
     Active Substance: TOPIRAMATE
     Dosage: 100 MG, 1X/DAY
     Route: 048
     Dates: start: 2022
  3. NP THYROID [Concomitant]
     Active Substance: LEVOTHYROXINE\LIOTHYRONINE

REACTIONS (6)
  - Blood chloride increased [Not Recovered/Not Resolved]
  - Blood sodium increased [Not Recovered/Not Resolved]
  - Bladder disorder [Not Recovered/Not Resolved]
  - Crystal urine present [Unknown]
  - Dehydration [Unknown]
  - Urinary incontinence [Not Recovered/Not Resolved]

NARRATIVE: CASE EVENT DATE: 20200101
